FAERS Safety Report 13876733 (Version 1)
Quarter: 2017Q3

REPORT INFORMATION
  Report Type: Spontaneous
  Country: US (occurrence: US)
  Receive Date: 20170817
  Receipt Date: 20170817
  Transmission Date: 20171127
  Serious: Yes (Other)
  Sender: FDA-Public Use
  Company Number: US-NAPPMUNDI-USA-2017-0140308

PATIENT
  Age: 60 Year
  Sex: Female

DRUGS (2)
  1. BUTRANS [Suspect]
     Active Substance: BUPRENORPHINE
     Indication: BACK PAIN
     Dosage: 20 MCG/HR, WEEKLY
     Route: 062
  2. BUTRANS [Suspect]
     Active Substance: BUPRENORPHINE
     Dosage: UNK MCG/HR, WEEKLY
     Route: 062
     Dates: start: 201706

REACTIONS (2)
  - Pneumonia [Unknown]
  - Inadequate analgesia [Not Recovered/Not Resolved]

NARRATIVE: CASE EVENT DATE: 201707
